FAERS Safety Report 8406069-1 (Version None)
Quarter: 2012Q2

REPORT INFORMATION
  Report Type: 
  Country: None (occurrence: None)
  Receive Date: 20120529
  Receipt Date: 20081225
  Transmission Date: 20120825
  Serious: Yes (Hospitalization, Other)
  Sender: FDA-Public Use
  Company Number: 001445

PATIENT
  Age: 59 Year
  Sex: Male
  Weight: 66.2 kg

DRUGS (18)
  1. LASIX [Concomitant]
  2. RABEPRAZOLE SODIUM [Concomitant]
  3. LACTULOSE [Concomitant]
  4. HEPAN ED (NUTRITION FOR HEPATIC INSUFFSIENCY) [Concomitant]
  5. MAGMITT (MAGNESIUM OXIDE) [Concomitant]
  6. OPC-41061 (TOLVAPTAN)(V4.1)) TABLET [Suspect]
     Indication: OEDEMA DUE TO HEPATIC DISEASE
     Dosage: 30 MG, DAILY DOSE, ORAL
     Route: 048
     Dates: start: 20080603, end: 20080606
  7. GASMOTIN (MOSAPRIDE CITRATE) [Concomitant]
  8. MALFA (ALUMINUM HYDROXIDE-MAGNESIUM HYDROXIDE) [Concomitant]
  9. PORTOLAC (LACTITOL HYDRATE) [Concomitant]
  10. PORTOLAC (LACTITOL HYDRATE) [Concomitant]
  11. SODIUM ALGINATE CALCIUM GLUCONATE INJ [Concomitant]
  12. AMINOLEBAN (AMINO ACID PREPARATIONS FOR HEPATIC INSUFFICIENCY) [Concomitant]
  13. RABEPRAZOLE SODIUM [Concomitant]
  14. FUNGIZONE [Concomitant]
  15. ALDACTONE [Concomitant]
  16. LASIX [Concomitant]
  17. AMINOLEBAN (AMINO ACID PREPARATIONS FOR HEPATIC INSUFFICIENCY) [Concomitant]
  18. MAGMITT (MAGNESIUM OXIDE) [Concomitant]

REACTIONS (3)
  - HEPATIC FAILURE [None]
  - HEPATIC ENCEPHALOPATHY [None]
  - ASTERIXIS [None]
